FAERS Safety Report 18795048 (Version 1)
Quarter: 2021Q1

REPORT INFORMATION
  Report Type: Spontaneous
  Country: US (occurrence: US)
  Receive Date: 20210127
  Receipt Date: 20210127
  Transmission Date: 20210419
  Serious: Yes (Life-Threatening)
  Sender: FDA-Public Use
  Company Number: None

PATIENT
  Age: 69 Year
  Sex: Female
  Weight: 103.3 kg

DRUGS (9)
  1. ATORVASTATIN 40MG [Concomitant]
     Active Substance: ATORVASTATIN
     Dates: start: 20210120
  2. DEXAMETHASONE 6MG [Concomitant]
     Dates: start: 20210121
  3. BARICITINIB. [Suspect]
     Active Substance: BARICITINIB
     Indication: COVID-19
     Route: 048
     Dates: start: 20210123, end: 20210125
  4. AZITHROMYCIN 500MG IV [Concomitant]
     Active Substance: AZITHROMYCIN ANHYDROUS
  5. CEFTRIAXONE 1MG [Concomitant]
     Dates: start: 20210120
  6. INSULIN ASPART SLIDING SCALE [Concomitant]
     Dates: start: 20210120
  7. REMDESIVIR 100MG [Concomitant]
     Active Substance: REMDESIVIR
     Dates: start: 20210121
  8. ENOXAPARIN 40MG [Concomitant]
     Active Substance: ENOXAPARIN
     Dates: start: 20210120
  9. LEVOTHYROXINE 0.175MG [Concomitant]
     Active Substance: LEVOTHYROXINE
     Dates: start: 20210120

REACTIONS (1)
  - Pulmonary embolism [None]

NARRATIVE: CASE EVENT DATE: 20210124
